FAERS Safety Report 18079051 (Version 1)
Quarter: 2020Q3

REPORT INFORMATION
  Report Type: Spontaneous
  Country: US (occurrence: US)
  Receive Date: 20200727
  Receipt Date: 20200727
  Transmission Date: 20201103
  Serious: Yes (Disabling, Other)
  Sender: FDA-Public Use
  Company Number: None

PATIENT
  Age: 53 Year
  Sex: Male
  Weight: 104.33 kg

DRUGS (1)
  1. PROTONIX [Suspect]
     Active Substance: PANTOPRAZOLE SODIUM
     Indication: GASTROOESOPHAGEAL REFLUX DISEASE
     Dosage: ?          QUANTITY:60;?
     Route: 048
     Dates: start: 20150101, end: 20200124

REACTIONS (5)
  - Myalgia [None]
  - Skin burning sensation [None]
  - Abdominal pain [None]
  - Chest discomfort [None]
  - Recalled product [None]

NARRATIVE: CASE EVENT DATE: 20191020
